FAERS Safety Report 4978207-4 (Version None)
Quarter: 2006Q2

REPORT INFORMATION
  Report Type: 
  Country: None (occurrence: None)
  Receive Date: 20060417
  Receipt Date: 20060405
  Transmission Date: 20061013
  Serious: Yes (Other)
  Sender: FDA-Public Use
  Company Number: CHPA2006US03562

PATIENT
  Age: 48 Year
  Sex: Female
  Weight: 52.2 kg

DRUGS (2)
  1. TRANSDERM SCOP [Suspect]
     Indication: DIZZINESS
     Dosage: SEE IMAGE
     Route: 062
  2. CLARITIN-D [Concomitant]

REACTIONS (9)
  - APPLICATION SITE ERYTHEMA [None]
  - APPLICATION SITE IRRITATION [None]
  - APPLICATION SITE PRURITUS [None]
  - CONDITION AGGRAVATED [None]
  - DIFFICULTY IN WALKING [None]
  - DIZZINESS [None]
  - DRUG DEPENDENCE [None]
  - NAUSEA [None]
  - VISION BLURRED [None]
